FAERS Safety Report 7795394-3 (Version None)
Quarter: 2011Q4

REPORT INFORMATION
  Report Type: 
  Country: None (occurrence: None)
  Receive Date: 20111004
  Receipt Date: 20110929
  Transmission Date: 20120403
  Serious: Yes (Hospitalization)
  Sender: FDA-Public Use
  Company Number: US-CEPHALON-2011005104

PATIENT
  Sex: Male
  Weight: 97 kg

DRUGS (10)
  1. LENALIDOMIDE [Concomitant]
     Dates: start: 20110906
  2. PROCHLORPERAZINE [Concomitant]
     Dates: start: 20110628
  3. TREANDA [Suspect]
     Indication: MULTIPLE MYELOMA
     Route: 041
     Dates: start: 20110628, end: 20110803
  4. DEXAMETHASONE [Suspect]
     Indication: MULTIPLE MYELOMA
     Dates: start: 20110628
  5. LENALIDOMIDE [Concomitant]
     Indication: MULTIPLE MYELOMA
     Dates: start: 20110628, end: 20110822
  6. ASPIRIN [Concomitant]
     Dates: start: 20110628
  7. TREANDA [Suspect]
     Route: 041
     Dates: start: 20110906
  8. ZOMETA [Concomitant]
  9. VALACYCLOVIR [Concomitant]
     Dates: start: 20110628
  10. GABAPENTIN [Concomitant]
     Dates: start: 20110802

REACTIONS (1)
  - FATIGUE [None]
